FAERS Safety Report 9792634 (Version 4)
Quarter: 2014Q4

REPORT INFORMATION
  Report Type: Report from Study
  Country: US (occurrence: US)
  Receive Date: 20140102
  Receipt Date: 20141008
  Transmission Date: 20150529
  Serious: Yes (Other)
  Sender: FDA-Public Use
  Company Number: US-SA-2013SA107706

PATIENT
  Age: 51 Year
  Sex: Male

DRUGS (2)
  1. AUBAGIO [Suspect]
     Active Substance: TERIFLUNOMIDE
     Indication: MULTIPLE SCLEROSIS
     Route: 048
     Dates: end: 20140903
  2. AUBAGIO [Suspect]
     Active Substance: TERIFLUNOMIDE
     Indication: MULTIPLE SCLEROSIS
     Route: 048
     Dates: start: 20130124

REACTIONS (14)
  - Progressive relapsing multiple sclerosis [Unknown]
  - Acne [Recovering/Resolving]
  - Fatigue [Unknown]
  - Memory impairment [Unknown]
  - Drug dose omission [Unknown]
  - Hypoaesthesia [Recovered/Resolved]
  - Headache [Unknown]
  - Central nervous system lesion [Recovering/Resolving]
  - Musculoskeletal pain [Recovering/Resolving]
  - Eye disorder [Unknown]
  - Mental disorder [Recovering/Resolving]
  - Drug ineffective [Unknown]
  - Speech disorder [Unknown]
  - Multiple sclerosis relapse [Unknown]

NARRATIVE: CASE EVENT DATE: 2013
